FAERS Safety Report 11173126 (Version 9)
Quarter: 2022Q2

REPORT INFORMATION
  Report Type: Spontaneous
  Country: US (occurrence: US)
  Receive Date: 20150608
  Receipt Date: 20220427
  Transmission Date: 20220721
  Serious: Yes (Other)
  Sender: FDA-Public Use
  Company Number: US-PFIZER INC-2015188032

PATIENT
  Age: 8 Year
  Sex: Male
  Weight: 30 kg

DRUGS (6)
  1. BENEFIX [Suspect]
     Active Substance: COAGULATION FACTOR IX RECOMBINANT HUMAN\ISOPROPYL ALCOHOL
     Indication: Factor IX deficiency
     Dosage: UNK
  2. BENEFIX [Suspect]
     Active Substance: COAGULATION FACTOR IX RECOMBINANT HUMAN\ISOPROPYL ALCOHOL
     Dosage: 3000 IU (X 2 DAYS AND DAILY ON DEMAND FOR FUTURE BLEEDS)
     Dates: start: 20151023, end: 20151123
  3. BENEFIX [Suspect]
     Active Substance: COAGULATION FACTOR IX RECOMBINANT HUMAN\ISOPROPYL ALCOHOL
     Dosage: AS NEEDED (DAILY ON DEMAND FOR BLEEDS)
  4. BENEFIX [Suspect]
     Active Substance: COAGULATION FACTOR IX RECOMBINANT HUMAN\ISOPROPYL ALCOHOL
     Dosage: AS NEEDED 3200 IU ((+/-5%) =100 U/KG =100% DOSE FOR BLEEDS ON DEMAND)
  5. BENEFIX [Suspect]
     Active Substance: COAGULATION FACTOR IX RECOMBINANT HUMAN\ISOPROPYL ALCOHOL
     Dosage: AS NEEDED, 3400 IU ((+/- 5%) = 100 U/KG DOSING DAILY FOR ON DEMAND BLEEDS)
  6. BENEFIX [Suspect]
     Active Substance: COAGULATION FACTOR IX RECOMBINANT HUMAN\ISOPROPYL ALCOHOL
     Dosage: AS NEEDED 4500 UNITS +5% = 100 ULKG FOR BLEEDS ON DEMAND

REACTIONS (2)
  - Haemorrhage [Unknown]
  - Weight increased [Unknown]
